FAERS Safety Report 15696207 (Version 3)
Quarter: 2019Q1

REPORT INFORMATION
  Report Type: Spontaneous
  Country: US (occurrence: US)
  Receive Date: 20181206
  Receipt Date: 20190103
  Transmission Date: 20190417
  Serious: Yes (Hospitalization)
  Sender: FDA-Public Use
  Company Number: US-ACTELION-A-NJ2018-183102

PATIENT
  Age: 23 Year
  Sex: Female

DRUGS (5)
  1. SILDENAFIL. [Concomitant]
     Active Substance: SILDENAFIL
  2. REMODULIN [Suspect]
     Active Substance: TREPROSTINIL
     Indication: PULMONARY ARTERIAL HYPERTENSION
     Dosage: 0.105MCG/KG CONTINUING
     Route: 042
     Dates: start: 20170111
  3. IRON [Concomitant]
     Active Substance: IRON
  4. OPSUMIT [Suspect]
     Active Substance: MACITENTAN
     Indication: PULMONARY ARTERIAL HYPERTENSION
     Dosage: 10 MG, QD
     Route: 048
     Dates: start: 20160114
  5. METOPROLOL. [Concomitant]
     Active Substance: METOPROLOL

REACTIONS (5)
  - Haemoptysis [Recovered/Resolved]
  - Sepsis [Unknown]
  - Central venous catheter removal [Unknown]
  - Fungal infection [Recovered/Resolved]
  - Catheter site infection [Unknown]

NARRATIVE: CASE EVENT DATE: 20181125
